FAERS Safety Report 7316321-9 (Version None)
Quarter: 2011Q1

REPORT INFORMATION
  Report Type: 
  Country: None (occurrence: None)
  Receive Date: 20110225
  Receipt Date: 20110218
  Transmission Date: 20110831
  Serious: Yes (Other)
  Sender: FDA-Public Use
  Company Number: US-US-EMD SERONO, INC.-7043272

PATIENT
  Sex: Female

DRUGS (5)
  1. SYNTHROID [Concomitant]
  2. SAIZEN [Suspect]
     Indication: GROWTH HORMONE DEFICIENCY
     Dates: start: 20050101, end: 20101201
  3. ESTROGEN PATCH [Concomitant]
  4. CORTEF [Concomitant]
  5. DDAVP [Concomitant]

REACTIONS (1)
  - BRAIN NEOPLASM [None]
